FAERS Safety Report 14161699 (Version 1)
Quarter: 2017Q4

REPORT INFORMATION
  Report Type: Spontaneous
  Country: US (occurrence: US)
  Receive Date: 20171105
  Receipt Date: 20171105
  Transmission Date: 20180321
  Serious: Yes (Other)
  Sender: FDA-Public Use
  Company Number: None

PATIENT
  Age: 58 Year
  Sex: Male
  Weight: 86.4 kg

DRUGS (2)
  1. PENNSAID [Suspect]
     Active Substance: DICLOFENAC SODIUM
     Indication: ARTHRALGIA
     Dosage: ?          QUANTITY:1 PACKET;?
     Route: 061
     Dates: start: 20171102, end: 20171103
  2. LOSARTAN. [Concomitant]
     Active Substance: LOSARTAN

REACTIONS (5)
  - Application site pain [None]
  - Application site discharge [None]
  - Application site rash [None]
  - Application site swelling [None]
  - Application site pruritus [None]

NARRATIVE: CASE EVENT DATE: 20171102
